FAERS Safety Report 7329478-0 (Version None)
Quarter: 2011Q1

REPORT INFORMATION
  Report Type: 
  Country: None (occurrence: None)
  Receive Date: 20110303
  Receipt Date: 20110228
  Transmission Date: 20110831
  Serious: Yes (Death)
  Sender: FDA-Public Use
  Company Number: JP-PFIZER INC-2011042456

PATIENT
  Age: 76 Year
  Sex: Female
  Weight: 58 kg

DRUGS (8)
  1. AMLODIPINE AND ATORVASTATIN [Suspect]
     Indication: ANGINA PECTORIS
  2. IRBESARTAN [Concomitant]
     Indication: HYPERTENSION
     Dosage: UNK
     Route: 048
     Dates: start: 20100722, end: 20110124
  3. ASPIRIN [Concomitant]
     Indication: ARRHYTHMIA
     Dosage: UNK
     Route: 048
     Dates: start: 20091124, end: 20110124
  4. GLUFAST [Concomitant]
     Indication: DIABETES MELLITUS
     Dosage: UNK
     Route: 048
     Dates: end: 20110124
  5. AMLODIPINE AND ATORVASTATIN [Suspect]
     Indication: HYPERTENSION
     Dosage: 5 MG/5 MG, 1X/DAY
     Dates: start: 20101114
  6. AMLODIPINE AND ATORVASTATIN [Suspect]
     Indication: HYPERCHOLESTEROLAEMIA
  7. IRBESARTAN [Concomitant]
     Indication: ANGINA PECTORIS
  8. IRBESARTAN [Concomitant]
     Indication: HYPERCHOLESTEROLAEMIA

REACTIONS (1)
  - DEATH [None]
